FAERS Safety Report 9943068 (Version 7)
Quarter: 2019Q3

REPORT INFORMATION
  Report Type: Spontaneous
  Country: US (occurrence: US)
  Receive Date: 20140303
  Receipt Date: 20190826
  Transmission Date: 20191005
  Serious: Yes (Other)
  Sender: FDA-Public Use
  Company Number: US-PFIZER INC-2014059760

PATIENT
  Age: 60 Year
  Sex: Female

DRUGS (2)
  1. DILANTIN [Suspect]
     Active Substance: PHENYTOIN
     Dosage: UNK
  2. TEGRETOL [Suspect]
     Active Substance: CARBAMAZEPINE
     Dosage: UNK

REACTIONS (4)
  - Drug ineffective [Unknown]
  - Drug hypersensitivity [Unknown]
  - Prescription drug used without a prescription [Unknown]
  - Loss of consciousness [Unknown]
